FAERS Safety Report 7312718-1 (Version None)
Quarter: 2011Q1

REPORT INFORMATION
  Report Type: 
  Country: None (occurrence: None)
  Receive Date: 20110224
  Receipt Date: 20110124
  Transmission Date: 20110831
  Serious: Yes (Other)
  Sender: FDA-Public Use
  Company Number: PHFR2011GB00452

PATIENT
  Sex: Male

DRUGS (3)
  1. AMISULPRIDE [Suspect]
     Dosage: 200MG DAILY
  2. CLOZARIL [Suspect]
     Indication: SCHIZOPHRENIA
     Dosage: 400 MG, QD
     Route: 048
     Dates: start: 20080125
  3. CLOZARIL [Suspect]
     Dosage: 400 MG, QD
     Route: 048

REACTIONS (1)
  - INCORRECT DOSE ADMINISTERED [None]
